FAERS Safety Report 6795919-0 (Version None)
Quarter: 2010Q2

REPORT INFORMATION
  Report Type: 
  Country: None (occurrence: None)
  Receive Date: 20100625
  Receipt Date: 20100617
  Transmission Date: 20101027
  Serious: Yes (Hospitalization, Other)
  Sender: FDA-Public Use
  Company Number: B0650154A

PATIENT
  Age: 78 Year
  Sex: Female
  Weight: 95 kg

DRUGS (13)
  1. ARIXTRA [Suspect]
     Indication: DRUG USE FOR UNKNOWN INDICATION
     Route: 058
     Dates: start: 20100323, end: 20100328
  2. PREVISCAN [Suspect]
     Indication: DRUG USE FOR UNKNOWN INDICATION
     Route: 048
     Dates: start: 20100325, end: 20100328
  3. VENTOLIN [Concomitant]
     Route: 065
  4. SERETIDE [Concomitant]
     Route: 065
  5. INIPOMP [Concomitant]
     Route: 048
  6. GAVISCON [Concomitant]
     Route: 065
  7. ISOPTIN [Concomitant]
     Route: 065
  8. FLECAINIDE ACETATE [Concomitant]
     Route: 065
  9. DIAMICRON [Concomitant]
     Route: 065
  10. AERIUS [Concomitant]
     Route: 065
  11. DISCOTRINE [Concomitant]
     Route: 065
  12. ISOCARD [Concomitant]
     Route: 065
  13. CALCIPARINE [Concomitant]
     Route: 065
     Dates: start: 20100101

REACTIONS (3)
  - ABDOMINAL PAIN [None]
  - MULTI-ORGAN FAILURE [None]
  - MUSCLE HAEMORRHAGE [None]
